FAERS Safety Report 5359122-3 (Version None)
Quarter: 2007Q2

REPORT INFORMATION
  Report Type: 
  Country: None (occurrence: None)
  Receive Date: 20070530
  Receipt Date: 20070330
  Transmission Date: 20071010
  Serious: No
  Sender: FDA-Public Use
  Company Number: 2007PV032754

PATIENT
  Age: 66 Year
  Sex: Female
  Weight: 133.3575 kg

DRUGS (7)
  1. BYETTA [Suspect]
     Indication: DIABETES MELLITUS INSULIN-DEPENDENT
     Dosage: SEE IMAGE
     Route: 058
     Dates: start: 20060101
  2. BYETTA [Suspect]
     Indication: DIABETES MELLITUS INSULIN-DEPENDENT
     Dosage: SEE IMAGE
     Route: 058
     Dates: start: 20060101
  3. HUMALOG [Concomitant]
  4. LANTUS [Concomitant]
  5. CYMBALTA [Concomitant]
  6. ISOSORBIDE DINITRATE [Concomitant]
  7. VERAPAMIL [Concomitant]

REACTIONS (4)
  - CEREBROVASCULAR ACCIDENT [None]
  - DECREASED APPETITE [None]
  - SILENT MYOCARDIAL INFARCTION [None]
  - WEIGHT DECREASED [None]
